FAERS Safety Report 21268765 (Version 3)
Quarter: 2022Q4

REPORT INFORMATION
  Report Type: Spontaneous
  Country: FR (occurrence: FR)
  Receive Date: 20220830
  Receipt Date: 20221006
  Transmission Date: 20230113
  Serious: Yes (Other)
  Sender: FDA-Public Use
  Company Number: FR-ORGANON-O2208FRA000086

PATIENT
  Sex: Female

DRUGS (1)
  1. NEXPLANON [Suspect]
     Active Substance: ETONOGESTREL
     Dosage: 1 IMPLANT IN LEFT ARM
     Route: 059
     Dates: start: 20220716

REACTIONS (7)
  - Device dislocation [Not Recovered/Not Resolved]
  - Pain in extremity [Recovered/Resolved]
  - Implant site reaction [Unknown]
  - Medical device site discomfort [Not Recovered/Not Resolved]
  - Complication associated with device [Recovered/Resolved]
  - Complication of device removal [Not Recovered/Not Resolved]
  - Complication of device insertion [Recovered/Resolved]

NARRATIVE: CASE EVENT DATE: 20220101
